FAERS Safety Report 13909902 (Version 1)
Quarter: 2017Q3

REPORT INFORMATION
  Report Type: Spontaneous
  Country: US (occurrence: US)
  Receive Date: 20170828
  Receipt Date: 20170828
  Transmission Date: 20171127
  Serious: Yes (Hospitalization, Other)
  Sender: FDA-Public Use
  Company Number: US-ASTELLAS-2017US033529

PATIENT
  Age: 57 Year
  Sex: Female

DRUGS (1)
  1. TACROLIMUS. [Suspect]
     Active Substance: TACROLIMUS
     Indication: RENAL TRANSPLANT
     Dosage: UNK UNK, UNKNOWN FREQ.
     Route: 065

REACTIONS (6)
  - Cholecystectomy [Unknown]
  - Cholecystitis chronic [Unknown]
  - Tumour lysis syndrome [Recovering/Resolving]
  - Neuroendocrine carcinoma metastatic [Unknown]
  - Small cell lung cancer [Unknown]
  - Acute kidney injury [Recovered/Resolved]
